FAERS Safety Report 4302161-1 (Version None)
Quarter: 2004Q1

REPORT INFORMATION
  Report Type: 
  Country: None (occurrence: None)
  Receive Date: 20040220
  Receipt Date: 20040211
  Transmission Date: 20041129
  Serious: Yes (Other)
  Sender: FDA-Public Use
  Company Number: EMADSS2003004167

PATIENT
  Age: 39 Year
  Sex: Female

DRUGS (3)
  1. MICONAZOLE [Suspect]
     Indication: GENITAL PRURITUS FEMALE
     Dosage: 400 MG
     Dates: start: 20030428, end: 20030430
  2. MICONAZOLE [Suspect]
     Indication: GENITAL PRURITUS FEMALE
     Dosage: 400 MG
     Dates: start: 20030916, end: 20030919
  3. FURABID (NITROFURANTOIN) [Concomitant]

REACTIONS (5)
  - ANTEPARTUM HAEMORRHAGE [None]
  - CAESAREAN SECTION [None]
  - COMPLICATIONS OF MATERNAL EXPOSURE TO THERAPEUTIC DRUGS [None]
  - MATERNAL DRUGS AFFECTING FOETUS [None]
  - UMBILICAL CORD PROLAPSE [None]
